FAERS Safety Report 17981394 (Version 1)
Quarter: 2020Q3

REPORT INFORMATION
  Report Type: Spontaneous
  Country: US (occurrence: US)
  Receive Date: 20200706
  Receipt Date: 20200706
  Transmission Date: 20201103
  Serious: No
  Sender: FDA-Public Use
  Company Number: US-DENTSPLY PHARMACEUTICAL-2019SCDP000473

PATIENT

DRUGS (3)
  1. LIDOCAINE HYDROCHLORIDE AND EPINEPHRINE BITARTRATE [Suspect]
     Active Substance: EPINEPHRINE BITARTRATE\LIDOCAINE HYDROCHLORIDE
     Indication: TELANGIECTASIA
     Dosage: 0.5 MILLILITER
  2. LIDOCAINE HYDROCHLORIDE AND EPINEPHRINE BITARTRATE [Suspect]
     Active Substance: EPINEPHRINE BITARTRATE\LIDOCAINE HYDROCHLORIDE
     Dosage: 1 MILLILITER
  3. GLYCERIN BP [Suspect]
     Active Substance: GLYCERIN
     Indication: TELANGIECTASIA
     Dosage: UNK

REACTIONS (1)
  - Injection site pain [Unknown]
